FAERS Safety Report 19395017 (Version 1)
Quarter: 2021Q2

REPORT INFORMATION
  Report Type: Spontaneous
  Country: CO (occurrence: CO)
  Receive Date: 20210609
  Receipt Date: 20210609
  Transmission Date: 20210717
  Serious: Yes (Hospitalization)
  Sender: FDA-Public Use
  Company Number: CO-PFIZER INC-2020092883

PATIENT
  Age: 34 Year
  Sex: Female

DRUGS (3)
  1. SUTENT [Suspect]
     Active Substance: SUNITINIB MALATE
     Dosage: 50 MG, CYCLIC (TAKES IT FOR TWO WEEKS AND RESTS ONE WEEK)
     Route: 048
     Dates: start: 2019
  2. SUTENT [Suspect]
     Active Substance: SUNITINIB MALATE
     Indication: GASTROINTESTINAL STROMAL TUMOUR
     Dosage: 50 MG, DAILY
     Route: 048
     Dates: start: 2012
  3. SUTENT [Suspect]
     Active Substance: SUNITINIB MALATE
     Dosage: 50 MG, DAILY (28 DAYS ON ? 1 WEEK OFF)
     Route: 048

REACTIONS (18)
  - Sensitive skin [Unknown]
  - Intentional product misuse [Unknown]
  - Blister [Unknown]
  - Gait disturbance [Unknown]
  - Vomiting [Unknown]
  - Alopecia [Unknown]
  - Malnutrition [Unknown]
  - Depression [Unknown]
  - Gastritis [Unknown]
  - Feeling abnormal [Unknown]
  - Peripheral swelling [Unknown]
  - Illness [Unknown]
  - Pyrexia [Unknown]
  - Ascites [Unknown]
  - Nail disorder [Unknown]
  - Neoplasm progression [Unknown]
  - Vascular compression [Unknown]
  - Bedridden [Unknown]
